FAERS Safety Report 11658944 (Version 1)
Quarter: 2015Q4

REPORT INFORMATION
  Report Type: Spontaneous
  Country: US (occurrence: None)
  Receive Date: 20151023
  Receipt Date: 20151023
  Transmission Date: 20160304
  Serious: No
  Sender: FDA-Public Use
  Company Number: None

PATIENT
  Age: 43 Year
  Sex: Male
  Weight: 101.61 kg

DRUGS (5)
  1. KOMBIGLYZE XR [Concomitant]
     Active Substance: METFORMIN HYDROCHLORIDE\SAXAGLIPTIN HYDROCHLORIDE
  2. LISINOPRIL. [Concomitant]
     Active Substance: LISINOPRIL
  3. PENNSAID [Suspect]
     Active Substance: DICLOFENAC SODIUM
     Indication: ARTHRALGIA
     Route: 061
     Dates: start: 20151003, end: 20151019
  4. SIMVASTATIN. [Concomitant]
     Active Substance: SIMVASTATIN
  5. ASPIRIN. [Concomitant]
     Active Substance: ASPIRIN

REACTIONS (4)
  - Application site pruritus [None]
  - Application site erythema [None]
  - Application site rash [None]
  - Application site swelling [None]

NARRATIVE: CASE EVENT DATE: 20151019
